FAERS Safety Report 9524705 (Version 1)
Quarter: 2013Q3

REPORT INFORMATION
  Report Type: Report from Study
  Country: CZ (occurrence: CZ)
  Receive Date: 20130916
  Receipt Date: 20130916
  Transmission Date: 20140515
  Serious: Yes (Other)
  Sender: FDA-Public Use
  Company Number: PHHY2013CZ101143

PATIENT
  Sex: Female

DRUGS (2)
  1. EXTAVIA [Suspect]
     Indication: MULTIPLE SCLEROSIS
     Dosage: 250 UG, UNK
     Dates: start: 20100703
  2. SOLUMEDROL [Suspect]
     Dosage: UNK UKN, UNK

REACTIONS (6)
  - Altered state of consciousness [Recovered/Resolved]
  - Musculoskeletal stiffness [Recovered/Resolved]
  - Sensory disturbance [Unknown]
  - Neutralising antibodies positive [Unknown]
  - Hypersensitivity [Recovered/Resolved]
  - Vomiting [Recovered/Resolved]
